FAERS Safety Report 6659550-X (Version None)
Quarter: 2010Q1

REPORT INFORMATION
  Report Type: 
  Country: None (occurrence: None)
  Receive Date: 20100326
  Receipt Date: 20100319
  Transmission Date: 20100710
  Serious: Yes (Hospitalization)
  Sender: FDA-Public Use
  Company Number: 2010SP006976

PATIENT
  Age: 55 Year
  Sex: Female
  Weight: 61 kg

DRUGS (10)
  1. PEGINTERFERON ALFA-2A [Suspect]
     Indication: HEPATITIS C
     Dosage: 0.35 ML;QW;SC
     Route: 058
     Dates: start: 20090707, end: 20100202
  2. LOXONIN [Concomitant]
  3. KETOPROFEN [Concomitant]
  4. FAMOTIDINE [Concomitant]
  5. METHYCOBAL [Concomitant]
  6. OMPRAZON [Concomitant]
  7. ADETPHOS [Concomitant]
  8. DASEN [Concomitant]
  9. MUCODYNE [Concomitant]
  10. PREDONINE [Concomitant]

REACTIONS (9)
  - AUTOPHONY [None]
  - BRAIN NEOPLASM [None]
  - EAR DISCOMFORT [None]
  - FEELING ABNORMAL [None]
  - MENIERE'S DISEASE [None]
  - NAUSEA [None]
  - TINNITUS [None]
  - VERTIGO [None]
  - VOMITING [None]
